FAERS Safety Report 6751257-3 (Version None)
Quarter: 2010Q2

REPORT INFORMATION
  Report Type: 
  Country: None (occurrence: None)
  Receive Date: 20100602
  Receipt Date: 20100524
  Transmission Date: 20101027
  Serious: Yes (Other)
  Sender: FDA-Public Use
  Company Number: US-ALEXION-A201000541

PATIENT
  Sex: Male

DRUGS (1)
  1. SOLIRIS [Suspect]
     Indication: PAROXYSMAL NOCTURNAL HAEMOGLOBINURIA
     Dosage: Q2W
     Route: 042

REACTIONS (7)
  - CONFUSIONAL STATE [None]
  - CONGENITAL CYSTIC KIDNEY DISEASE [None]
  - DIZZINESS [None]
  - FATIGUE [None]
  - FLANK PAIN [None]
  - NASOPHARYNGITIS [None]
  - POLYCYSTIC LIVER DISEASE [None]
